FAERS Safety Report 19034241 (Version 6)
Quarter: 2021Q3

REPORT INFORMATION
  Report Type: Report from Study
  Country: US (occurrence: US)
  Receive Date: 20210319
  Receipt Date: 20210809
  Transmission Date: 20211014
  Serious: Yes (Other)
  Sender: FDA-Public Use
  Company Number: NVSC2021US064510

PATIENT
  Age: 63 Year
  Sex: Male

DRUGS (2)
  1. COSENTYX [Suspect]
     Active Substance: SECUKINUMAB
     Dosage: 150 MG, QMO
     Route: 058
  2. COSENTYX [Suspect]
     Active Substance: SECUKINUMAB
     Indication: PSORIATIC ARTHROPATHY
     Dosage: 150 MG, QW, BENEATH THE SKIN, USUALLY VIA INJECTION
     Route: 058
     Dates: start: 20210317

REACTIONS (7)
  - Psoriatic arthropathy [Unknown]
  - Nausea [Unknown]
  - Weight decreased [Unknown]
  - Renal disorder [Unknown]
  - Vitamin B12 decreased [Unknown]
  - Fatigue [Unknown]
  - Laziness [Unknown]

NARRATIVE: CASE EVENT DATE: 20210318
